FAERS Safety Report 17666375 (Version 1)
Quarter: 2020Q2

REPORT INFORMATION
  Report Type: Spontaneous
  Country: US (occurrence: US)
  Receive Date: 20200413
  Receipt Date: 20200413
  Transmission Date: 20200713
  Serious: Yes (Disabling, Other)
  Sender: FDA-Public Use
  Company Number: None

PATIENT
  Age: 82 Year
  Sex: Female
  Weight: 74.84 kg

DRUGS (7)
  1. DOXYCYCLINE HYCLATE 100MG TAB [Suspect]
     Active Substance: DOXYCYCLINE HYCLATE
     Dosage: ?          QUANTITY:14 DF DOSAGE FORM;?
     Route: 048
     Dates: start: 20190807, end: 20190811
  2. LISINOPRIL. [Concomitant]
     Active Substance: LISINOPRIL
  3. ESTER-C [Concomitant]
  4. MULTIVITAMIN [Concomitant]
     Active Substance: VITAMINS
  5. LEVOTHYROXINE. [Concomitant]
     Active Substance: LEVOTHYROXINE
  6. CIPRO [Suspect]
     Active Substance: CIPROFLOXACIN HYDROCHLORIDE
  7. FISH OIL W/OMEGA-3 [Concomitant]

REACTIONS (14)
  - Chills [None]
  - Diarrhoea [None]
  - Tendon rupture [None]
  - Nausea [None]
  - Fatigue [None]
  - Ageusia [None]
  - Malaise [None]
  - Motor dysfunction [None]
  - Gait disturbance [None]
  - Feeling hot [None]
  - Anosmia [None]
  - Visual impairment [None]
  - Dyspnoea [None]
  - Dysphagia [None]

NARRATIVE: CASE EVENT DATE: 20190810
